FAERS Safety Report 6019045-3 (Version None)
Quarter: 2008Q4

REPORT INFORMATION
  Report Type: 
  Country: None (occurrence: None)
  Receive Date: 20081224
  Receipt Date: 20081217
  Transmission Date: 20090506
  Serious: Yes (Hospitalization, Other)
  Sender: FDA-Public Use
  Company Number: ES-AVENTIS-200821617GDDC

PATIENT
  Age: 50 Year
  Sex: Female

DRUGS (3)
  1. LANTUS [Suspect]
     Route: 058
     Dates: start: 20080901, end: 20080901
  2. LANTUS [Suspect]
     Route: 058
     Dates: start: 20081201, end: 20081201
  3. NOVORAPID [Concomitant]

REACTIONS (1)
  - INJECTION SITE ABSCESS [None]
